FAERS Safety Report 24586377 (Version 3)
Quarter: 2025Q2

REPORT INFORMATION
  Report Type: Spontaneous
  Country: JP (occurrence: JP)
  Receive Date: 20241106
  Receipt Date: 20250617
  Transmission Date: 20250716
  Serious: Yes (Hospitalization)
  Sender: BRISTOL-MYERS SQUIBB COMPANY
  Company Number: JP-BRISTOL-MYERS SQUIBB COMPANY-2024-172946

PATIENT
  Age: 6 Decade
  Sex: Male

DRUGS (2)
  1. SOTYKTU [Suspect]
     Active Substance: DEUCRAVACITINIB
     Indication: Psoriasis
     Route: 048
     Dates: start: 20240522
  2. SOTYKTU [Suspect]
     Active Substance: DEUCRAVACITINIB
     Route: 048
     Dates: start: 20241029

REACTIONS (2)
  - Pharyngitis [Recovering/Resolving]
  - Pyrexia [Recovered/Resolved]
